FAERS Safety Report 5927492-0 (Version None)
Quarter: 2008Q4

REPORT INFORMATION
  Report Type: 
  Country: None (occurrence: None)
  Receive Date: 20081022
  Receipt Date: 20081022
  Transmission Date: 20090506
  Serious: Yes (Hospitalization)
  Sender: FDA-Public Use
  Company Number: None

PATIENT
  Age: 62 Year
  Sex: Male
  Weight: 71.1 kg

DRUGS (7)
  1. DASATINIB (BRISTOL-MYERS SQUIBB) [Suspect]
     Indication: GLIOBLASTOMA MULTIFORME
     Dosage: 210 MG DAILY PO
     Route: 048
     Dates: start: 20081008, end: 20081018
  2. ERLOTINIB (GENENTECH/OSIP) [Suspect]
     Indication: GLIOBLASTOMA MULTIFORME
     Dosage: 150 MG DAILY PO
     Route: 048
     Dates: start: 20081008, end: 20081018
  3. COREG [Concomitant]
  4. LIPITOR [Concomitant]
  5. LISINOPRIL AND HYDROCHLOROTHIAZIDE [Concomitant]
  6. DONNATAL [Concomitant]
  7. DEPAKOTE [Concomitant]

REACTIONS (6)
  - ASTHENIA [None]
  - COUGH [None]
  - DEHYDRATION [None]
  - LETHARGY [None]
  - PYREXIA [None]
  - VOMITING [None]
